FAERS Safety Report 6175825-5 (Version None)
Quarter: 2009Q2

REPORT INFORMATION
  Report Type: 
  Country: None (occurrence: None)
  Receive Date: 20090501
  Receipt Date: 20090423
  Transmission Date: 20091009
  Serious: Yes (Hospitalization)
  Sender: FDA-Public Use
  Company Number: US-BAYER-200918984NA

PATIENT
  Sex: Male

DRUGS (8)
  1. NEXAVAR [Suspect]
     Indication: RENAL CANCER
     Dosage: TOTAL DAILY DOSE: 800 MG  UNIT DOSE: 200 MG
     Route: 048
     Dates: start: 20080601, end: 20080910
  2. TOPROL-XL [Concomitant]
  3. LASIX [Concomitant]
  4. HUMULIN R [Concomitant]
  5. ALBUTEROL [Concomitant]
  6. ADVAIR HFA [Concomitant]
  7. JANUVIA [Concomitant]
  8. LOVENOX [Concomitant]

REACTIONS (3)
  - HAEMORRHAGE [None]
  - PERICARDIAL EFFUSION [None]
  - PLEURAL EFFUSION [None]
